FAERS Safety Report 10829951 (Version 1)
Quarter: 2015Q1

REPORT INFORMATION
  Report Type: Report from Study
  Country: US (occurrence: US)
  Receive Date: 20150219
  Receipt Date: 20150219
  Transmission Date: 20150721
  Serious: No
  Sender: FDA-Public Use
  Company Number: US-ABBVIE-14P-163-1189179-00

PATIENT
  Age: 62 Year
  Sex: Female

DRUGS (2)
  1. HUMIRA [Suspect]
     Active Substance: ADALIMUMAB
     Indication: CROHN^S DISEASE
     Dates: start: 20131125
  2. HUMIRA [Suspect]
     Active Substance: ADALIMUMAB
     Dates: start: 20140124

REACTIONS (5)
  - Malaise [Recovering/Resolving]
  - Fatigue [Recovering/Resolving]
  - Injection site haemorrhage [Recovering/Resolving]
  - Injection site rash [Recovering/Resolving]
  - Drug dose omission [Unknown]

NARRATIVE: CASE EVENT DATE: 20131125
